FAERS Safety Report 6451537-5 (Version None)
Quarter: 2009Q4

REPORT INFORMATION
  Report Type: 
  Country: None (occurrence: None)
  Receive Date: 20091123
  Receipt Date: 20091118
  Transmission Date: 20100525
  Serious: Yes (Death)
  Sender: FDA-Public Use
  Company Number: RU-BRISTOL-MYERS SQUIBB COMPANY-14863120

PATIENT
  Age: 55 Year
  Sex: Male

DRUGS (23)
  1. CARBOPLATIN [Suspect]
     Indication: NON-SMALL CELL LUNG CANCER
     Dosage: 6 AUC, LAST DOSE TAKEN ON 26OCT2009
     Route: 042
     Dates: start: 20090602, end: 20091102
  2. PACLITAXEL [Suspect]
     Indication: NON-SMALL CELL LUNG CANCER
     Dosage: LAST DOSE TAKEN ON 26OCT2009
     Route: 042
     Dates: start: 20090602, end: 20091102
  3. EPOETIN ALFA [Concomitant]
     Indication: ANAEMIA
     Route: 058
     Dates: start: 20090916
  4. CEFTRIAXONE SODIUM [Concomitant]
     Indication: PROPHYLAXIS
     Route: 042
     Dates: start: 20091026, end: 20091106
  5. DEXAMETHASONE [Concomitant]
     Indication: INTENSIVE CARE
     Dosage: 6NOV09-10NOV09:4 DAYS
     Route: 042
     Dates: start: 20091106, end: 20091110
  6. SODIUM CHLORIDE 0.9% [Concomitant]
     Indication: THROMBOSIS PROPHYLAXIS
     Route: 042
     Dates: start: 20091026, end: 20091106
  7. DIPHENHYDRAMINE HCL [Concomitant]
     Indication: THROMBOSIS PROPHYLAXIS
     Route: 042
     Dates: start: 20091026, end: 20091106
  8. PREDNISONE [Concomitant]
     Indication: PROPHYLAXIS
     Route: 042
     Dates: start: 20091106, end: 20091106
  9. HETASTARCH IN SODIUM CHLORIDE [Concomitant]
     Indication: INTENSIVE CARE
     Dosage: 10%:6NOV09-10NOV09:4 DAYS
     Route: 042
     Dates: start: 20091106, end: 20091106
  10. VOLUVEN [Concomitant]
     Route: 042
     Dates: start: 20091106, end: 20091106
  11. MERONEM [Concomitant]
     Indication: INTENSIVE CARE
     Route: 042
     Dates: start: 20091106, end: 20091110
  12. EUPHYLLINE [Concomitant]
     Indication: INTENSIVE CARE
     Route: 042
     Dates: start: 20091106, end: 20091110
  13. POTASSIUM CHLORIDE [Concomitant]
     Indication: INTENSIVE CARE
     Route: 042
     Dates: start: 20091106, end: 20091110
  14. MAGNESIUM SULFATE [Concomitant]
     Indication: INTENSIVE CARE
     Route: 042
     Dates: start: 20091106, end: 20091110
  15. ALBUMIN (HUMAN) [Concomitant]
     Indication: INTENSIVE CARE
     Route: 042
     Dates: start: 20091106, end: 20091110
  16. ETAMSYLATE [Concomitant]
     Indication: INTENSIVE CARE
     Dosage: 12.5%
     Route: 042
     Dates: start: 20091106, end: 20091110
  17. QUAMATEL [Concomitant]
     Indication: INTENSIVE CARE
     Route: 042
     Dates: start: 20091106, end: 20091110
  18. METRONIDAZOLE [Concomitant]
     Indication: INFLAMMATION
     Route: 042
     Dates: start: 20091106, end: 20091106
  19. MORPHINE [Concomitant]
     Indication: PAIN
     Route: 042
     Dates: start: 20091106, end: 20091106
  20. RELANIUM [Concomitant]
     Indication: SEDATIVE THERAPY
     Route: 042
     Dates: start: 20091106, end: 20091106
  21. RINGER'S [Concomitant]
     Indication: INTENSIVE CARE
     Dosage: PERLOGAN +RINGER SOULTION
     Route: 042
     Dates: start: 20091108, end: 20091110
  22. MYCOSYST [Concomitant]
     Indication: INTENSIVE CARE
     Route: 042
     Dates: start: 20091106, end: 20091110
  23. LEUCOSTIM [Concomitant]
     Indication: THROMBOSIS PROPHYLAXIS
     Route: 042
     Dates: start: 20091026, end: 20091106

REACTIONS (1)
  - MULTI-ORGAN FAILURE [None]
